FAERS Safety Report 24678447 (Version 1)
Quarter: 2024Q4

REPORT INFORMATION
  Report Type: Spontaneous
  Country: US (occurrence: US)
  Receive Date: 20241129
  Receipt Date: 20241129
  Transmission Date: 20250114
  Serious: No
  Sender: GRANULES PHARMACEUTICALS INC
  Company Number: US-GRANULES-US-2024GRASPO00607

PATIENT
  Sex: Female

DRUGS (1)
  1. POTASSIUM CHLORIDE [Suspect]
     Active Substance: POTASSIUM CHLORIDE
     Indication: Product used for unknown indication
     Dosage: 10 MEQ
     Route: 065

REACTIONS (7)
  - Muscular weakness [Unknown]
  - Pain in extremity [Unknown]
  - Myalgia [Unknown]
  - Gait disturbance [Unknown]
  - Heart rate increased [Unknown]
  - Illness [Unknown]
  - Recalled product administered [Unknown]
